FAERS Safety Report 5244066-8 (Version None)
Quarter: 2007Q1

REPORT INFORMATION
  Report Type: 
  Country: None (occurrence: None)
  Receive Date: 20070222
  Receipt Date: 20070212
  Transmission Date: 20070707
  Serious: Yes (Hospitalization)
  Sender: FDA-Public Use
  Company Number: US-ROCHE-456931

PATIENT
  Age: 43 Year
  Sex: Female
  Weight: 53 kg

DRUGS (12)
  1. MYCOPHENOLATE MOFETIL [Suspect]
     Indication: IMMUNOSUPPRESSION
     Route: 048
     Dates: start: 20050808
  2. CP-690550 [Suspect]
     Indication: IMMUNOSUPPRESSION
     Route: 048
     Dates: start: 20050808, end: 20050915
  3. PREDNISONE [Suspect]
     Indication: KIDNEY TRANSPLANT REJECTION
     Route: 048
     Dates: start: 20050811
  4. MULTIVITAMIN NOS [Concomitant]
     Route: 048
     Dates: start: 20050812
  5. ASCORBIC ACID [Concomitant]
     Route: 048
     Dates: start: 20050812
  6. FERROUS SULFATE TAB [Concomitant]
     Route: 048
     Dates: start: 20050812
  7. AXID [Concomitant]
     Indication: PROPHYLAXIS
     Route: 048
     Dates: start: 20050812
  8. NYSTATIN [Concomitant]
     Indication: ANTIFUNGAL PROPHYLAXIS
     Route: 048
     Dates: start: 20050811
  9. VALCYTE [Concomitant]
     Indication: ANTIVIRAL PROPHYLAXIS
     Route: 048
     Dates: start: 20050812
  10. BACTRIM [Concomitant]
     Route: 048
     Dates: start: 20050811
  11. NORVASC [Concomitant]
     Route: 048
     Dates: start: 20050811
  12. METOPROLOL SUCCINATE [Concomitant]
     Route: 048
     Dates: start: 20050811

REACTIONS (2)
  - EMBOLIC STROKE [None]
  - ENDOCARDITIS [None]
